FAERS Safety Report 6100199-5 (Version None)
Quarter: 2009Q1

REPORT INFORMATION
  Report Type: 
  Country: None (occurrence: None)
  Receive Date: 20090303
  Receipt Date: 20090217
  Transmission Date: 20090719
  Serious: Yes (Other)
  Sender: FDA-Public Use
  Company Number: BR-ROCHE-615477

PATIENT
  Sex: Female

DRUGS (3)
  1. BONIVA [Suspect]
     Indication: PREMATURE MENOPAUSE
     Route: 048
     Dates: start: 20070101
  2. CALCIUM [Concomitant]
     Indication: PREMATURE MENOPAUSE
     Dates: start: 20070101
  3. VITAMINE D [Concomitant]
     Indication: PREMATURE MENOPAUSE
     Dosage: DRUG NAME: VITAMIN D
     Dates: start: 20070101

REACTIONS (1)
  - BONE DISORDER [None]
